FAERS Safety Report 9401201 (Version 2)
Quarter: 2013Q3

REPORT INFORMATION
  Report Type: Spontaneous
  Country: US (occurrence: US)
  Receive Date: 20130715
  Receipt Date: 20130725
  Transmission Date: 20140515
  Serious: Yes (Other)
  Sender: FDA-Public Use
  Company Number: US-TEVA-418050USA

PATIENT
  Sex: Male
  Weight: 147.55 kg

DRUGS (5)
  1. PROAIR HFA [Suspect]
     Indication: DYSPNOEA
     Dosage: FOUR TIMES A DAY
     Route: 055
  2. GABAPENTIN [Suspect]
     Indication: DIABETIC NEUROPATHY
  3. CHLORTALIDONE [Suspect]
     Indication: BLOOD PRESSURE ABNORMAL
     Route: 048
  4. LYRICA [Suspect]
     Indication: DIABETIC NEUROPATHY
     Dosage: TWO TIMES A DAY
     Route: 048
  5. CRESTOR [Suspect]
     Indication: CARDIAC DISORDER
     Dosage: DAILY
     Route: 048

REACTIONS (4)
  - Spinal fracture [Unknown]
  - Surgery [Unknown]
  - Nerve injury [Unknown]
  - Abdominal discomfort [Unknown]
